FAERS Safety Report 10365959 (Version 4)
Quarter: 2014Q3

REPORT INFORMATION
  Report Type: Spontaneous
  Country: DE (occurrence: DE)
  Receive Date: 20140806
  Receipt Date: 20140914
  Transmission Date: 20150326
  Serious: Yes (Hospitalization, Other)
  Sender: FDA-Public Use
  Company Number: PHHY2014DE095555

PATIENT
  Sex: Male

DRUGS (2)
  1. ACLASTA [Suspect]
     Active Substance: ZOLEDRONIC ACID
     Dosage: 5 MG, ONCE YEARLY
     Route: 042
     Dates: start: 20140314
  2. LACTATED RINGERS [Concomitant]
     Active Substance: CALCIUM CHLORIDE\POTASSIUM CHLORIDE\SODIUM CHLORIDE\SODIUM LACTATE
     Dosage: 500 MG, UNK

REACTIONS (20)
  - Intervertebral disc protrusion [Unknown]
  - C-reactive protein increased [Unknown]
  - Cerebellar atrophy [Unknown]
  - Radicular syndrome [Unknown]
  - Back pain [Unknown]
  - Hemiplegia [Not Recovered/Not Resolved]
  - Diabetic neuropathy [Unknown]
  - Influenza like illness [Not Recovered/Not Resolved]
  - Pyrexia [Not Recovered/Not Resolved]
  - Tendonitis [Unknown]
  - Chest pain [Not Recovered/Not Resolved]
  - Spinal column stenosis [Unknown]
  - Pain in extremity [Recovering/Resolving]
  - Restless legs syndrome [Unknown]
  - Fatigue [Unknown]
  - Neuropathy peripheral [Unknown]
  - Monoparesis [Unknown]
  - Marasmus [Unknown]
  - General physical health deterioration [Unknown]
  - Muscle spasms [Unknown]

NARRATIVE: CASE EVENT DATE: 20140325
